FAERS Safety Report 9970720 (Version 1)
Quarter: 2014Q1

REPORT INFORMATION
  Report Type: Spontaneous
  Country: US (occurrence: None)
  Receive Date: 20140128
  Receipt Date: 20140128
  Transmission Date: 20141002
  Serious: Yes (Hospitalization)
  Sender: FDA-Public Use
  Company Number: A-NJ2012-75613

PATIENT
  Age: 92 Year
  Sex: Female

DRUGS (2)
  1. TRACLEER [Suspect]
     Indication: PULMONARY ARTERIAL HYPERTENSION
     Route: 048
  2. PRADAX (DABIGATRAN ETEXILATE MESILATE) [Concomitant]

REACTIONS (2)
  - Bronchitis [None]
  - Cardiac failure acute [None]
